FAERS Safety Report 7115722-1 (Version None)
Quarter: 2010Q4

REPORT INFORMATION
  Report Type: 
  Country: None (occurrence: None)
  Receive Date: 20101118
  Receipt Date: 20101118
  Transmission Date: 20110411
  Serious: Yes (Life-Threatening, Hospitalization, Disabling, Other)
  Sender: FDA-Public Use
  Company Number: None

PATIENT
  Sex: Male
  Weight: 104.7809 kg

DRUGS (2)
  1. ROCEPHIN [Suspect]
     Indication: LYMPHANGITIS
     Dosage: 1 GM DAILY IM
     Route: 030
     Dates: start: 20090526, end: 20090528
  2. CHANTIX [Suspect]
     Indication: NICOTINE DEPENDENCE
     Dosage: STARTER PACK PO
     Route: 048
     Dates: start: 20090416, end: 20090529

REACTIONS (2)
  - SKIN ULCER [None]
  - VASCULITIS [None]
